FAERS Safety Report 4367868-9 (Version None)
Quarter: 2004Q2

REPORT INFORMATION
  Report Type: 
  Country: None (occurrence: None)
  Receive Date: 20040601
  Receipt Date: 20040601
  Transmission Date: 20050107
  Serious: No
  Sender: FDA-Public Use
  Company Number: None

PATIENT
  Age: 26 Year
  Sex: Female
  Weight: 72.5755 kg

DRUGS (2)
  1. ANAFRANIL [Suspect]
     Indication: DEPRESSION
     Dosage: 75 MG 1 X DAILY ORAL
     Route: 048
     Dates: start: 20031001, end: 20040530
  2. ANAFRANIL [Suspect]
     Indication: OBSESSIVE-COMPULSIVE DISORDER
     Dosage: 75 MG 1 X DAILY ORAL
     Route: 048
     Dates: start: 20031001, end: 20040530

REACTIONS (3)
  - BURNS SECOND DEGREE [None]
  - PHOTOSENSITIVITY REACTION [None]
  - SCAR [None]
